FAERS Safety Report 5345248-7 (Version None)
Quarter: 2007Q2

REPORT INFORMATION
  Report Type: 
  Country: None (occurrence: None)
  Receive Date: 20070601
  Receipt Date: 20070522
  Transmission Date: 20071010
  Serious: Yes (Other)
  Sender: FDA-Public Use
  Company Number: B0473026A

PATIENT
  Age: 40 Year
  Sex: Female

DRUGS (3)
  1. LAMIVUDINE [Suspect]
  2. ZIDOVUDINE [Suspect]
  3. EFAVIRENZ ZIDOVUDINE  (FORMULATION UNKNOWN) (EFAVIRENZ) [Suspect]

REACTIONS (5)
  - ASPIRATION [None]
  - DYSARTHRIA [None]
  - DYSPHAGIA [None]
  - GENERAL PHYSICAL HEALTH DETERIORATION [None]
  - IMMUNE RECONSTITUTION SYNDROME [None]
